FAERS Safety Report 10314566 (Version 2)
Quarter: 2014Q3

REPORT INFORMATION
  Report Type: Spontaneous
  Country: US (occurrence: US)
  Receive Date: 20140718
  Receipt Date: 20140718
  Transmission Date: 20150326
  Serious: Yes (Hospitalization, Disabling, Other)
  Sender: FDA-Public Use
  Company Number: US-009507513-2010SP046935

PATIENT
  Age: 42 Year
  Sex: Female
  Weight: 101.61 kg

DRUGS (12)
  1. OMEPRAZOLE. [Concomitant]
     Active Substance: OMEPRAZOLE
     Dates: start: 2004, end: 2009
  2. CALCIUM (UNSPECIFIED) [Concomitant]
     Active Substance: CALCIUM
     Dosage: CALCIUM SUPPLEMENT
  3. NUVARING [Suspect]
     Active Substance: ETHINYL ESTRADIOL\ETONOGESTREL
     Indication: PREMENSTRUAL SYNDROME
     Dates: start: 200703, end: 20080915
  4. NUVARING [Suspect]
     Active Substance: ETHINYL ESTRADIOL\ETONOGESTREL
     Indication: DYSMENORRHOEA
  5. PROVENTIL [Concomitant]
     Active Substance: ALBUTEROL
     Indication: ASTHMA
     Dates: start: 199305
  6. COUMADIN [Suspect]
     Active Substance: WARFARIN SODIUM
     Indication: PULMONARY EMBOLISM
     Dates: start: 20080920, end: 201007
  7. ZYRTEC [Concomitant]
     Active Substance: CETIRIZINE HYDROCHLORIDE
     Dates: start: 2004, end: 2009
  8. NUVARING [Suspect]
     Active Substance: ETHINYL ESTRADIOL\ETONOGESTREL
     Indication: CONTRACEPTION
  9. PROZAC [Concomitant]
     Active Substance: FLUOXETINE HYDROCHLORIDE
     Dates: start: 1996, end: 2010
  10. NUVARING [Suspect]
     Active Substance: ETHINYL ESTRADIOL\ETONOGESTREL
     Indication: MENSTRUATION IRREGULAR
  11. FLOVENT [Concomitant]
     Active Substance: FLUTICASONE PROPIONATE
     Indication: ASTHMA
     Dates: start: 2004
  12. SINGULAIR [Concomitant]
     Active Substance: MONTELUKAST SODIUM
     Dates: start: 2004

REACTIONS (13)
  - Pain [Unknown]
  - Pulmonary mass [Unknown]
  - Neurodermatitis [Unknown]
  - Lichen planus [Unknown]
  - Haemorrhage [Unknown]
  - Pulmonary embolism [Recovering/Resolving]
  - Chest pain [Unknown]
  - Psoriasis [Unknown]
  - Tooth abscess [Unknown]
  - Pulmonary infarction [Unknown]
  - Cellulitis [Unknown]
  - Motion sickness [Unknown]
  - Off label use [Unknown]

NARRATIVE: CASE EVENT DATE: 2008
